FAERS Safety Report 21759935 (Version 1)
Quarter: 2022Q4

REPORT INFORMATION
  Report Type: Spontaneous
  Country: US (occurrence: None)
  Receive Date: 20221220
  Receipt Date: 20221220
  Transmission Date: 20230113
  Serious: Yes (Hospitalization)
  Sender: FDA-Public Use
  Company Number: None

PATIENT
  Age: 57 Year
  Sex: Female

DRUGS (23)
  1. AMBRISENTAN [Suspect]
     Active Substance: AMBRISENTAN
     Indication: Pulmonary arterial hypertension
     Dosage: 5MG BID ORAL?
     Route: 048
     Dates: start: 20181108, end: 20221212
  2. TADALAFIL [Concomitant]
     Active Substance: TADALAFIL
  3. DIGOXIN [Concomitant]
     Active Substance: DIGOXIN
  4. TORSEMIDE [Concomitant]
     Active Substance: TORSEMIDE
  5. ACETAZOLAMIDE [Concomitant]
     Active Substance: ACETAZOLAMIDE
  6. VITAMIN D3 [Concomitant]
     Active Substance: CHOLECALCIFEROL
  7. VITAMIN D2 [Concomitant]
     Active Substance: ERGOCALCIFEROL
  8. ALBUTEROL [Concomitant]
     Active Substance: ALBUTEROL
  9. MOTRIN [Concomitant]
     Active Substance: IBUPROFEN
  10. ALBUTEROL SULFATE [Concomitant]
     Active Substance: ALBUTEROL SULFATE
  11. CETIRIZINE [Concomitant]
     Active Substance: CETIRIZINE HYDROCHLORIDE
  12. TYLENOL [Concomitant]
     Active Substance: ACETAMINOPHEN
  13. HUMULIN N [Concomitant]
     Active Substance: INSULIN HUMAN
  14. K-TAB [Concomitant]
     Active Substance: POTASSIUM CHLORIDE
  15. KEPPRA [Concomitant]
     Active Substance: LEVETIRACETAM
  16. ACETAZOLAMIDE [Concomitant]
     Active Substance: ACETAZOLAMIDE
  17. alvesco HFA [Concomitant]
  18. OMEPRAZOLE [Concomitant]
     Active Substance: OMEPRAZOLE
  19. OFEV [Concomitant]
     Active Substance: NINTEDANIB
  20. oxygen intranasal [Concomitant]
  21. vit B-12 [Concomitant]
  22. ASPIRIN [Concomitant]
     Active Substance: ASPIRIN
  23. EMERGEN-C [Concomitant]
     Active Substance: VITAMINS

REACTIONS (3)
  - Acute respiratory failure [None]
  - Pneumonia aspiration [None]
  - Bacterial sepsis [None]

NARRATIVE: CASE EVENT DATE: 20221014
